FAERS Safety Report 23029697 (Version 2)
Quarter: 2024Q2

REPORT INFORMATION
  Report Type: Report from Study
  Country: JP (occurrence: JP)
  Receive Date: 20231004
  Receipt Date: 20240418
  Transmission Date: 20240716
  Serious: Yes (Other)
  Sender: FDA-Public Use
  Company Number: JP-TAKEDA-2023TJP012844

PATIENT
  Age: 21 Year
  Sex: Male

DRUGS (5)
  1. VONICOG ALFA [Suspect]
     Active Substance: VONICOG ALFA
     Indication: Haemostasis
     Dosage: 5200 INTERNATIONAL UNIT
     Route: 042
     Dates: start: 20210608, end: 20210608
  2. VONICOG ALFA [Suspect]
     Active Substance: VONICOG ALFA
     Indication: Haemorrhage prophylaxis
     Dosage: 3900 INTERNATIONAL UNIT
     Route: 042
     Dates: start: 20210609, end: 20210613
  3. VONICOG ALFA [Suspect]
     Active Substance: VONICOG ALFA
     Indication: Von Willebrand^s disease
     Dosage: UNK INTERNATIONAL UNIT
     Route: 042
     Dates: start: 202106
  4. VONICOG ALFA [Suspect]
     Active Substance: VONICOG ALFA
     Dosage: 2600 INTERNATIONAL UNIT, QOD
     Route: 042
     Dates: start: 20210917
  5. VONICOG ALFA [Suspect]
     Active Substance: VONICOG ALFA
     Dosage: 2600 INTERNATIONAL UNIT
     Route: 042
     Dates: start: 20210924, end: 20211014

REACTIONS (7)
  - Epistaxis [Unknown]
  - Chest discomfort [Not Recovered/Not Resolved]
  - Nausea [Unknown]
  - Off label use [Unknown]
  - Product use complaint [Unknown]
  - Off label use [Unknown]
  - Incorrect drug administration rate [Unknown]

NARRATIVE: CASE EVENT DATE: 20210601
